FAERS Safety Report 22610067 (Version 1)
Quarter: 2023Q2

REPORT INFORMATION
  Report Type: Spontaneous
  Country: MY (occurrence: MY)
  Receive Date: 20230616
  Receipt Date: 20230616
  Transmission Date: 20230721
  Serious: Yes (Other)
  Sender: FDA-Public Use
  Company Number: MY-PFIZER INC-202300220119

PATIENT
  Age: 28 Year
  Sex: Female

DRUGS (1)
  1. UNASYN [Suspect]
     Active Substance: AMPICILLIN SODIUM\SULBACTAM SODIUM
     Indication: Antibiotic therapy
     Dosage: 1.5 G, 1X/DAY
     Route: 030

REACTIONS (5)
  - Oxygen saturation decreased [Recovering/Resolving]
  - Hypotension [Recovering/Resolving]
  - Heart rate increased [Recovering/Resolving]
  - Angioedema [Recovering/Resolving]
  - Off label use [Unknown]
